FAERS Safety Report 17782308 (Version 1)
Quarter: 2020Q2

REPORT INFORMATION
  Report Type: Spontaneous
  Country: US (occurrence: US)
  Receive Date: 20200514
  Receipt Date: 20200514
  Transmission Date: 20200714
  Serious: No
  Sender: FDA-Public Use
  Company Number: US-GALDERMA-US2020018106

PATIENT
  Sex: Female

DRUGS (3)
  1. DIFFERIN GEL [Suspect]
     Active Substance: ADAPALENE
     Indication: ACNE CYSTIC
     Dosage: 0.1%
     Route: 061
  2. UNSPECIFIED FACE WASH [Concomitant]
     Active Substance: UNSPECIFIED INGREDIENT
     Indication: PRODUCT USED FOR UNKNOWN INDICATION
     Route: 065
  3. UNSPECIFIED MOITURIZER [Concomitant]
     Indication: PRODUCT USED FOR UNKNOWN INDICATION
     Route: 065

REACTIONS (5)
  - Erythema [Recovering/Resolving]
  - Acne [Recovering/Resolving]
  - Pain of skin [Recovering/Resolving]
  - Skin burning sensation [Recovering/Resolving]
  - Skin irritation [Recovering/Resolving]
